FAERS Safety Report 14628314 (Version 1)
Quarter: 2018Q1

REPORT INFORMATION
  Report Type: Spontaneous
  Country: US (occurrence: US)
  Receive Date: 20180312
  Receipt Date: 20180312
  Transmission Date: 20180509
  Serious: No
  Sender: FDA-Public Use
  Company Number: US-ALLERGAN-1757576US

PATIENT
  Sex: Female

DRUGS (1)
  1. ESTRACE [Suspect]
     Active Substance: ESTRADIOL
     Indication: MENOPAUSE
     Dosage: 1 G, Q2WEEKS
     Route: 067
     Dates: start: 201708, end: 20170928

REACTIONS (2)
  - Dysuria [Recovered/Resolved]
  - Micturition urgency [Recovered/Resolved]
